FAERS Safety Report 6577109-X (Version None)
Quarter: 2010Q1

REPORT INFORMATION
  Report Type: 
  Country: None (occurrence: None)
  Receive Date: 20100210
  Receipt Date: 20100201
  Transmission Date: 20100710
  Serious: Yes (Death, Hospitalization)
  Sender: FDA-Public Use
  Company Number: US-BAXTER-2010BH002146

PATIENT
  Age: 79 Year
  Sex: Male

DRUGS (3)
  1. DIANEAL [Suspect]
     Indication: PERITONEAL DIALYSIS
     Route: 033
     Dates: start: 20050324
  2. DIANEAL [Suspect]
     Route: 033
     Dates: start: 20050324
  3. HEPARIN [Concomitant]
     Indication: DRUG USE FOR UNKNOWN INDICATION
     Route: 033

REACTIONS (3)
  - CATHETER SITE INFECTION [None]
  - CONFUSIONAL STATE [None]
  - DEATH [None]
